FAERS Safety Report 6013487-8 (Version None)
Quarter: 2008Q4

REPORT INFORMATION
  Report Type: 
  Country: None (occurrence: None)
  Receive Date: 20081219
  Receipt Date: 20081210
  Transmission Date: 20090506
  Serious: Yes (Life-Threatening)
  Sender: FDA-Public Use
  Company Number: DK-JNJFOC-20081202864

PATIENT
  Sex: Female

DRUGS (3)
  1. REMICADE [Suspect]
     Route: 042
  2. REMICADE [Suspect]
     Indication: RHEUMATOID ARTHRITIS
     Route: 042
  3. PREDNISOLONE [Concomitant]

REACTIONS (3)
  - DYSPNOEA [None]
  - INFUSION RELATED REACTION [None]
  - MALAISE [None]
